FAERS Safety Report 8196313-0 (Version None)
Quarter: 2012Q1

REPORT INFORMATION
  Report Type: 
  Country: None (occurrence: None)
  Receive Date: 20120309
  Receipt Date: 20120305
  Transmission Date: 20120608
  Serious: No
  Sender: FDA-Public Use
  Company Number: US-PFIZER INC-2012058744

PATIENT
  Sex: Female
  Weight: 104 kg

DRUGS (2)
  1. PRISTIQ [Suspect]
     Indication: DEPRESSION
     Dosage: UNK
     Dates: start: 20110101
  2. PRISTIQ [Suspect]
     Dosage: 200 MG, 1X/DAY
     Dates: end: 20120302

REACTIONS (3)
  - HEADACHE [None]
  - DRUG WITHDRAWAL SYNDROME [None]
  - NAUSEA [None]
